FAERS Safety Report 16664607 (Version 1)
Quarter: 2019Q3

REPORT INFORMATION
  Report Type: Spontaneous
  Country: ES (occurrence: ES)
  Receive Date: 20190802
  Receipt Date: 20190802
  Transmission Date: 20191004
  Serious: Yes (Death, Other)
  Sender: FDA-Public Use
  Company Number: ES-SUN PHARMACEUTICAL INDUSTRIES LTD-2019RR-216127

PATIENT
  Age: 92 Year
  Sex: Male
  Weight: 50 kg

DRUGS (7)
  1. SINTROM [Interacting]
     Active Substance: ACENOCOUMAROL
     Indication: ATRIAL FIBRILLATION
     Dosage: SEGUN INR
     Route: 048
     Dates: start: 20110823
  2. ATENOLOL 50 MG COMPRIMIDO [Concomitant]
     Indication: HYPERTENSION
     Dosage: 0,5-0-0
     Route: 048
     Dates: start: 20051221
  3. SEGURIL 40 MG COMPRIMIDOS [Concomitant]
     Active Substance: FUROSEMIDE
     Indication: CARDIAC FAILURE
     Dosage: 1-0-0
     Route: 048
     Dates: start: 20180115
  4. UROLOSINOCAS [Concomitant]
     Indication: BENIGN PROSTATIC HYPERPLASIA
     Dosage: 0-0-1-0
     Route: 048
     Dates: start: 20060424
  5. OMEPRAZOLE. [Suspect]
     Active Substance: OMEPRAZOLE
     Indication: PRODUCT USED FOR UNKNOWN INDICATION
     Dosage: 1-0-0
     Route: 048
     Dates: start: 20181122
  6. HIGROTONA 50 MG [Concomitant]
     Indication: CARDIAC FAILURE
     Dosage: 1 CADA 24 HORAS
     Route: 048
     Dates: start: 20171204
  7. DIGOXINA 0,25 MG COMPRIMIDO [Concomitant]
     Active Substance: DIGOXIN
     Indication: CARDIAC FAILURE
     Dosage: 1/2 CADA 24 HORAS
     Route: 048
     Dates: start: 20110624

REACTIONS (1)
  - Epistaxis [Recovered/Resolved]

NARRATIVE: CASE EVENT DATE: 20181128
